FAERS Safety Report 8423041-6 (Version None)
Quarter: 2012Q2

REPORT INFORMATION
  Report Type: 
  Country: None (occurrence: None)
  Receive Date: 20120608
  Receipt Date: 20120530
  Transmission Date: 20120825
  Serious: Yes (Other)
  Sender: FDA-Public Use
  Company Number: US-JNJFOC-20120600678

PATIENT
  Sex: Female
  Weight: 102.97 kg

DRUGS (2)
  1. REMICADE [Suspect]
     Indication: CROHN'S DISEASE
     Route: 042
     Dates: start: 20110201
  2. REMICADE [Suspect]
     Route: 042
     Dates: start: 20120505, end: 20120505

REACTIONS (3)
  - SENSATION OF FOREIGN BODY [None]
  - INFUSION RELATED REACTION [None]
  - HYPERSENSITIVITY [None]
